FAERS Safety Report 19656481 (Version 4)
Quarter: 2021Q4

REPORT INFORMATION
  Report Type: Report from Study
  Country: CO (occurrence: CO)
  Receive Date: 20210804
  Receipt Date: 20211026
  Transmission Date: 20220303
  Serious: Yes (Hospitalization)
  Sender: FDA-Public Use
  Company Number: CO-BRISTOL-MYERS SQUIBB COMPANY-BMS-2021-040506

PATIENT
  Age: 61 Year
  Sex: Male
  Weight: 80 kg

DRUGS (3)
  1. NIVOLUMAB [Suspect]
     Active Substance: NIVOLUMAB
     Indication: Renal cancer
     Dosage: 231 MILLIGRAM, Q3WK
     Route: 042
     Dates: start: 20210422, end: 20210630
  2. NIVOLUMAB [Suspect]
     Active Substance: NIVOLUMAB
     Dosage: 480 MG EVERY 30 DAYS
     Route: 042
     Dates: start: 20210422, end: 20211007
  3. YERVOY [Suspect]
     Active Substance: IPILIMUMAB
     Indication: Renal cancer
     Dosage: 77 MILLIGRAM, Q3WK
     Route: 042
     Dates: start: 20210422, end: 20210630

REACTIONS (4)
  - Urinary tract infection [Recovering/Resolving]
  - Thyroid function test abnormal [Recovering/Resolving]
  - Prescribed underdose [Unknown]
  - Off label use [Unknown]

NARRATIVE: CASE EVENT DATE: 20210423
